FAERS Safety Report 22001631 (Version 2)
Quarter: 2023Q1

REPORT INFORMATION
  Report Type: Spontaneous
  Country: ES (occurrence: ES)
  Receive Date: 20230216
  Receipt Date: 20230302
  Transmission Date: 20230418
  Serious: Yes (Hospitalization, Disabling)
  Sender: FDA-Public Use
  Company Number: ES-TEVA-2023-ES-2855888

PATIENT
  Age: 49 Year
  Sex: Female

DRUGS (2)
  1. NAPROXEN [Suspect]
     Active Substance: NAPROXEN
     Indication: Suicide attempt
     Dosage: ADMINISTERED TWO BLISTER PACKS
     Route: 065
  2. LORAZEPAM [Suspect]
     Active Substance: LORAZEPAM
     Indication: Suicide attempt
     Dosage: ADMINISTERED TWO BLISTER PACKS
     Route: 065

REACTIONS (5)
  - Compartment syndrome [Recovering/Resolving]
  - Metabolic acidosis [Recovering/Resolving]
  - Rhabdomyolysis [Recovering/Resolving]
  - Renal failure [Recovering/Resolving]
  - Intentional overdose [Unknown]
